FAERS Safety Report 8582456-6 (Version None)
Quarter: 2012Q3

REPORT INFORMATION
  Report Type: 
  Country: None (occurrence: None)
  Receive Date: 20120809
  Receipt Date: 20120730
  Transmission Date: 20120928
  Serious: Yes (Other)
  Sender: FDA-Public Use
  Company Number: ES-JNJFOC-20120714384

PATIENT
  Age: 37 Year
  Sex: Female

DRUGS (5)
  1. REMICADE [Suspect]
     Route: 042
     Dates: start: 20100401
  2. MESALAMINE [Concomitant]
     Route: 065
  3. REMICADE [Suspect]
     Indication: CROHN'S DISEASE
     Dosage: 0, 2 AND 6 AND SUBSEQUENTLY EVERY 8 WEEKS
     Route: 042
     Dates: start: 20081101, end: 20091101
  4. MESALAMINE [Concomitant]
     Indication: CROHN'S DISEASE
     Route: 065
  5. MESALAMINE [Concomitant]
     Route: 065

REACTIONS (4)
  - MATERNAL EXPOSURE DURING PREGNANCY [None]
  - ABORTION INDUCED [None]
  - CROHN'S DISEASE [None]
  - CHORIOAMNIONITIS [None]
